FAERS Safety Report 12294794 (Version 3)
Quarter: 2016Q2

REPORT INFORMATION
  Report Type: Spontaneous
  Country: IL (occurrence: IL)
  Receive Date: 20160422
  Receipt Date: 20160425
  Transmission Date: 20160815
  Serious: Yes (Life-Threatening, Hospitalization, Other)
  Sender: FDA-Public Use
  Company Number: IL-PFIZER INC-2016214809

PATIENT
  Age: 55 Year
  Sex: Male

DRUGS (2)
  1. ADVIL [Suspect]
     Active Substance: IBUPROFEN
     Indication: PAIN
     Dosage: 200 MG, 1X/DAY
  2. ADVIL [Suspect]
     Active Substance: IBUPROFEN
     Indication: FATIGUE

REACTIONS (3)
  - Haematemesis [Recovering/Resolving]
  - Liver injury [Recovering/Resolving]
  - Haemorrhage [Recovering/Resolving]
